FAERS Safety Report 7574397-8 (Version None)
Quarter: 2011Q2

REPORT INFORMATION
  Report Type: 
  Country: None (occurrence: None)
  Receive Date: 20110627
  Receipt Date: 20110621
  Transmission Date: 20111010
  Serious: Yes (Death, Hospitalization, Congenital Anomaly, Other)
  Sender: FDA-Public Use
  Company Number: BR-ASTRAZENECA-2011SE37654

PATIENT
  Age: 0 Week
  Sex: Male

DRUGS (1)
  1. NEXIUM [Suspect]
     Route: 048

REACTIONS (4)
  - CARDIAC ARREST [None]
  - HEART RATE IRREGULAR [None]
  - FOETAL THERAPEUTIC PROCEDURE [None]
  - CONGENITAL AORTIC STENOSIS [None]
